FAERS Safety Report 4601749-8 (Version None)
Quarter: 2005Q1

REPORT INFORMATION
  Report Type: 
  Country: None (occurrence: None)
  Receive Date: 20050131
  Receipt Date: 20041215
  Transmission Date: 20050727
  Serious: No
  Sender: FDA-Public Use
  Company Number: 200419612US

PATIENT
  Age: 27 Year
  Sex: Female
  Weight: 63.6 kg

DRUGS (2)
  1. TELITHROMYCIN (KETEK) TABLETS [Suspect]
     Indication: BRONCHITIS
     Dosage: 2 TABLETS 400 MG MG QD PO
     Route: 048
     Dates: start: 20041214, end: 20041214
  2. COUGH MEDICINE [Concomitant]

REACTIONS (1)
  - VOMITING [None]
